FAERS Safety Report 10695616 (Version 3)
Quarter: 2015Q1

REPORT INFORMATION
  Report Type: Spontaneous
  Country: US (occurrence: US)
  Receive Date: 20150107
  Receipt Date: 20150304
  Transmission Date: 20150721
  Serious: Yes (Other)
  Sender: FDA-Public Use
  Company Number: US-PFIZER INC-2015004436

PATIENT
  Age: 56 Year
  Sex: Female

DRUGS (8)
  1. ST JOSEPH ASPIRIN [Concomitant]
     Indication: THROMBOSIS PROPHYLAXIS
     Dosage: 81 MG, 1X/DAY
     Dates: start: 2009
  2. LIPITOR [Suspect]
     Active Substance: ATORVASTATIN CALCIUM
     Dosage: UNK, AS DIRECTED
     Route: 048
     Dates: start: 2005, end: 2012
  3. LOSARTAN [Concomitant]
     Active Substance: LOSARTAN
     Indication: CEREBROVASCULAR ACCIDENT
  4. AMLODIPINE BESYLATE. [Concomitant]
     Active Substance: AMLODIPINE BESYLATE
     Indication: HYPERTENSION
     Dosage: 5 MG, 1X/DAY
     Dates: start: 2009
  5. ATORVASTATIN CALCIUM. [Suspect]
     Active Substance: ATORVASTATIN CALCIUM
     Indication: BLOOD CHOLESTEROL INCREASED
     Dosage: 80 MG, 1X/DAY
     Route: 048
     Dates: start: 2012
  6. AZOPT DROPS [Concomitant]
     Indication: INTRAOCULAR PRESSURE INCREASED
     Dosage: 10 MG OF 1%, 1X/DAY
     Dates: start: 2010
  7. LOSARTAN [Concomitant]
     Active Substance: LOSARTAN
     Indication: HYPERTENSION
     Dosage: 100 MG, 1X/DAY
     Dates: start: 2001
  8. TIMOLOL MALEATE OPHTHALMIC SOLUTION [Concomitant]
     Indication: INTRAOCULAR PRESSURE INCREASED
     Dosage: 0.5 TO 10 ML, 3X/DAY
     Route: 047
     Dates: start: 2010

REACTIONS (2)
  - Type 2 diabetes mellitus [Not Recovered/Not Resolved]
  - Emotional distress [Not Recovered/Not Resolved]

NARRATIVE: CASE EVENT DATE: 201207
